FAERS Safety Report 15353705 (Version 1)
Quarter: 2018Q3

REPORT INFORMATION
  Report Type: Spontaneous
  Country: DE (occurrence: DE)
  Receive Date: 20180905
  Receipt Date: 20180905
  Transmission Date: 20181010
  Serious: Yes (Hospitalization)
  Sender: FDA-Public Use
  Company Number: DE-DSJP-DSE-2018-138802

PATIENT

DRUGS (1)
  1. LIXIANA [Suspect]
     Active Substance: EDOXABAN TOSYLATE
     Indication: ATRIAL FIBRILLATION
     Dosage: 30 MG, UNK
     Route: 048
     Dates: end: 20180817

REACTIONS (2)
  - Rib fracture [Not Recovered/Not Resolved]
  - Haemothorax [Not Recovered/Not Resolved]

NARRATIVE: CASE EVENT DATE: 2018
